FAERS Safety Report 8098600-3 (Version None)
Quarter: 2012Q1

REPORT INFORMATION
  Report Type: 
  Country: None (occurrence: None)
  Receive Date: 20120129
  Receipt Date: 20110924
  Transmission Date: 20120608
  Serious: No
  Sender: FDA-Public Use
  Company Number: US-ABBOTT-11P-163-0857830-00

PATIENT
  Age: 56 Year
  Sex: Female

DRUGS (9)
  1. HUMIRA [Suspect]
     Indication: CROHN'S DISEASE
     Dates: start: 20110601
  2. ATIVAN [Concomitant]
     Indication: INSOMNIA
     Dosage: AT NIGHT
  3. MULTI-VITAMIN [Concomitant]
     Indication: VITAMIN SUPPLEMENTATION
  4. BONIVA [Concomitant]
     Indication: OSTEOPOROSIS
  5. INDAPAMIDE [Concomitant]
     Indication: CALCIUM METABOLISM DISORDER
  6. FOLIC ACID [Concomitant]
     Indication: VITAMIN SUPPLEMENTATION
  7. LEXAPRO [Concomitant]
     Indication: DEPRESSION
  8. CALOSOL [Concomitant]
     Indication: MINERAL SUPPLEMENTATION
  9. VITAMIN D [Concomitant]
     Indication: VITAMIN SUPPLEMENTATION

REACTIONS (2)
  - RASH PAPULAR [None]
  - INJECTION SITE PRURITUS [None]
